FAERS Safety Report 6773145-9 (Version None)
Quarter: 2010Q2

REPORT INFORMATION
  Report Type: 
  Country: None (occurrence: None)
  Receive Date: 20100616
  Receipt Date: 20100604
  Transmission Date: 20101027
  Serious: Yes (Other)
  Sender: FDA-Public Use
  Company Number: JP-ABBOTT-10P-087-0651236-00

PATIENT
  Age: 82 Year
  Sex: Male

DRUGS (3)
  1. LEUPROLIDE ACETATE [Suspect]
     Indication: PROSTATE CANCER STAGE IV
     Route: 058
     Dates: start: 20070220
  2. BICALUTAMIDE [Concomitant]
     Indication: PROSTATE CANCER STAGE IV
     Route: 048
  3. BLADDERON [Concomitant]
     Indication: NOCTURIA
     Route: 048
     Dates: start: 20080708

REACTIONS (3)
  - ANAEMIA [None]
  - PNEUMONIA [None]
  - SPINAL COMPRESSION FRACTURE [None]
